FAERS Safety Report 20356729 (Version 1)
Quarter: 2022Q1

REPORT INFORMATION
  Report Type: Spontaneous
  Country: US (occurrence: None)
  Receive Date: 20220119
  Receipt Date: 20220119
  Transmission Date: 20220423
  Serious: Yes (Other)
  Sender: FDA-Public Use
  Company Number: None

PATIENT
  Age: 41 Year
  Sex: Female
  Weight: 78.75 kg

DRUGS (1)
  1. DEXAMETHASONE [Suspect]
     Active Substance: DEXAMETHASONE
     Indication: Pulmonary pain
     Dosage: OTHER QUANTITY : 2 TABLET(S);?
     Route: 048

REACTIONS (5)
  - Swollen tongue [None]
  - Night sweats [None]
  - Seizure [None]
  - Tremor [None]
  - Feeling abnormal [None]

NARRATIVE: CASE EVENT DATE: 20220118
